FAERS Safety Report 16661831 (Version 1)
Quarter: 2019Q3

REPORT INFORMATION
  Report Type: Spontaneous
  Country: US (occurrence: US)
  Receive Date: 20190802
  Receipt Date: 20190802
  Transmission Date: 20191004
  Serious: Yes (Hospitalization)
  Sender: FDA-Public Use
  Company Number: US-PFIZER INC-2019326778

PATIENT
  Sex: Female

DRUGS (1)
  1. TOLTERODINE TARTRATE. [Suspect]
     Active Substance: TOLTERODINE TARTRATE
     Dosage: UNK

REACTIONS (5)
  - Gait disturbance [Unknown]
  - Nosocomial infection [Unknown]
  - Pleural effusion [Unknown]
  - Dyspnoea [Unknown]
  - Back disorder [Unknown]
